FAERS Safety Report 9578519 (Version 1)
Quarter: 2013Q4

REPORT INFORMATION
  Report Type: Spontaneous
  Country: US (occurrence: US)
  Receive Date: 20131001
  Receipt Date: 20131001
  Transmission Date: 20140711
  Serious: No
  Sender: FDA-Public Use
  Company Number: US-AMGEN-USASP2013013779

PATIENT
  Sex: Female
  Weight: 67.12 kg

DRUGS (11)
  1. ENBREL [Suspect]
     Indication: RHEUMATOID ARTHRITIS
     Dosage: 50 MG, QWK
     Route: 058
  2. SYNTHYROID [Concomitant]
     Dosage: 100 MUG, UNK
  3. ALENDRONATE [Concomitant]
     Dosage: 70 MG, UNK
  4. MINOCIN [Concomitant]
     Dosage: 50 MG, UNK
  5. CALCIUM [Concomitant]
     Dosage: 500 UNK, UNK
  6. VITAMIN D                          /00107901/ [Concomitant]
     Dosage: 1000 UNIT, UNK
  7. MAGNESIUM [Concomitant]
     Dosage: 400 MG, UNK
  8. FISH OIL [Concomitant]
     Dosage: UNK
  9. OLIVE LEAVES EXTRACT [Concomitant]
     Dosage: 250 MG, UNK
  10. YEAST [Concomitant]
     Dosage: UNK
  11. MULTIVITAMINS, PLAIN [Concomitant]
     Dosage: UNK

REACTIONS (3)
  - Injection site pruritus [Unknown]
  - Injection site swelling [Unknown]
  - Injection site erythema [Unknown]
